FAERS Safety Report 6142559-2 (Version None)
Quarter: 2009Q2

REPORT INFORMATION
  Report Type: 
  Country: None (occurrence: None)
  Receive Date: 20090403
  Receipt Date: 20090401
  Transmission Date: 20091009
  Serious: Yes (Other)
  Sender: FDA-Public Use
  Company Number: US-ASTRAZENECA-2009UW01699

PATIENT
  Age: 21393 Day
  Sex: Female
  Weight: 78 kg

DRUGS (11)
  1. SYMBICORT [Suspect]
     Indication: ASTHMA
     Dosage: 2 PUFFS TWO TIMES A DAY
     Route: 055
     Dates: start: 20090112, end: 20090127
  2. PRAVASTATIN [Concomitant]
  3. NEXIUM [Concomitant]
  4. SYNTHROID [Concomitant]
  5. FOSAMAX [Concomitant]
  6. BUSPAR [Concomitant]
  7. PHENOBARBITAL [Concomitant]
  8. PROZAC [Concomitant]
  9. SINGULAIR [Concomitant]
  10. PROVENTIL [Concomitant]
  11. ASTELIN [Concomitant]

REACTIONS (5)
  - ACCIDENTAL OVERDOSE [None]
  - FEELING ABNORMAL [None]
  - FEELING OF BODY TEMPERATURE CHANGE [None]
  - HEART RATE INCREASED [None]
  - INSOMNIA [None]
